FAERS Safety Report 23338609 (Version 1)
Quarter: 2023Q4

REPORT INFORMATION
  Report Type: Spontaneous
  Country: EG (occurrence: EG)
  Receive Date: 20231226
  Receipt Date: 20231226
  Transmission Date: 20240109
  Serious: Yes (Other)
  Sender: FDA-Public Use
  Company Number: EG-SANDOZ-SDZ2023EG067352

PATIENT

DRUGS (10)
  1. VOLTAREN [Suspect]
     Active Substance: DICLOFENAC SODIUM
     Indication: Pyrexia
     Dosage: 100 MG, QD (Q24H)
     Route: 048
     Dates: start: 20231026
  2. VOLTAREN [Suspect]
     Active Substance: DICLOFENAC SODIUM
     Indication: Oropharyngeal pain
  3. DICLOFENAC SODIUM [Suspect]
     Active Substance: DICLOFENAC\DICLOFENAC SODIUM
     Indication: Pyrexia
     Dosage: 150 MG, BID (Q12H)
     Route: 048
     Dates: start: 20231026
  4. DICLOFENAC SODIUM [Suspect]
     Active Substance: DICLOFENAC\DICLOFENAC SODIUM
     Indication: Oropharyngeal pain
  5. CEFTRIAXONE [Suspect]
     Active Substance: CEFTRIAXONE\CEFTRIAXONE SODIUM
     Indication: Pyrexia
     Dosage: 2 G, QD (Q24H)
     Route: 042
     Dates: start: 20231024, end: 20231029
  6. CEFTRIAXONE [Suspect]
     Active Substance: CEFTRIAXONE\CEFTRIAXONE SODIUM
     Indication: Oropharyngeal pain
  7. KETOROLAC TROMETHAMINE [Suspect]
     Active Substance: KETOROLAC TROMETHAMINE
     Indication: Pyrexia
     Dosage: UNK, QID (Q8H)
     Route: 042
     Dates: start: 20231026
  8. KETOROLAC TROMETHAMINE [Suspect]
     Active Substance: KETOROLAC TROMETHAMINE
     Indication: Oropharyngeal pain
  9. DOLIPRANE [Suspect]
     Active Substance: ACETAMINOPHEN
     Indication: Pyrexia
     Dosage: 1 G, BID (Q12H)
     Route: 048
     Dates: start: 20231026
  10. DOLIPRANE [Suspect]
     Active Substance: ACETAMINOPHEN
     Indication: Oropharyngeal pain

REACTIONS (5)
  - Acute kidney injury [Recovered/Resolved]
  - Dyspnoea [Unknown]
  - Fatigue [Recovered/Resolved]
  - Oliguria [Unknown]
  - Blood creatinine increased [Unknown]

NARRATIVE: CASE EVENT DATE: 20231101
